FAERS Safety Report 5156194-6 (Version None)
Quarter: 2006Q4

REPORT INFORMATION
  Report Type: 
  Country: None (occurrence: None)
  Receive Date: 20061122
  Receipt Date: 20061113
  Transmission Date: 20070319
  Serious: Yes (Hospitalization)
  Sender: FDA-Public Use
  Company Number: 2006CG01845

PATIENT
  Age: 85 Year
  Sex: Female
  Weight: 74 kg

DRUGS (12)
  1. NEXIUM [Suspect]
     Route: 048
     Dates: end: 20060919
  2. PREVISCAN [Interacting]
     Route: 048
     Dates: end: 20060919
  3. ORACILLINE [Interacting]
     Route: 048
     Dates: start: 20060909, end: 20060919
  4. DEROXAT [Interacting]
     Indication: DEPRESSION
     Route: 048
     Dates: end: 20060919
  5. AVLOCARDYL [Concomitant]
     Indication: HYPERTENSION
     Route: 048
  6. MODOPAR [Concomitant]
     Indication: PARKINSON'S DISEASE
     Route: 048
  7. LOXEN [Concomitant]
     Indication: HYPERTENSION
     Route: 048
     Dates: end: 20060919
  8. LEVOTHYROXINE SODIUM [Concomitant]
     Indication: HYPOTHYROIDISM
  9. LANSOYL [Concomitant]
  10. FORLAX [Concomitant]
  11. ALUMINUM HYDROXIDE AND MAGNESIUM TRISILICATE [Concomitant]
  12. SPASFON [Concomitant]

REACTIONS (12)
  - CLOSTRIDIUM DIFFICILE TOXIN TEST POSITIVE [None]
  - COLITIS [None]
  - DRUG INTERACTION [None]
  - HYPOALBUMINAEMIA [None]
  - HYPOPROTHROMBINAEMIA [None]
  - INFLAMMATION [None]
  - INTERNATIONAL NORMALISED RATIO INCREASED [None]
  - LARGE INTESTINAL ULCER [None]
  - PROCTITIS [None]
  - RECTAL HAEMORRHAGE [None]
  - RENAL FAILURE [None]
  - SIGMOIDITIS [None]
